FAERS Safety Report 11986373 (Version 1)
Quarter: 2016Q1

REPORT INFORMATION
  Report Type: Spontaneous
  Country: US (occurrence: None)
  Receive Date: 20160201
  Receipt Date: 20160201
  Transmission Date: 20160526
  Serious: Yes (Life-Threatening, Hospitalization, Disabling, Other)
  Sender: FDA-Public Use
  Company Number: None

PATIENT
  Age: 74 Year
  Sex: Male
  Weight: 113 kg

DRUGS (10)
  1. LINEZOLID 600 MG [Concomitant]
     Active Substance: LINEZOLID
     Indication: OSTEOMYELITIS
     Route: 048
  2. COLCHICINE. [Concomitant]
     Active Substance: COLCHICINE
  3. ATORVASTATIN [Concomitant]
     Active Substance: ATORVASTATIN
  4. METRONIDAZOLE. [Concomitant]
     Active Substance: METRONIDAZOLE
  5. CEFEPIME [Concomitant]
     Active Substance: CEFEPIME HYDROCHLORIDE
  6. FEBUXOSTAT 40MG [Suspect]
     Active Substance: FEBUXOSTAT
     Indication: GOUT
     Route: 048
  7. INSULIN DETERMIR [Concomitant]
  8. OMEPRAZOLE. [Concomitant]
     Active Substance: OMEPRAZOLE
  9. PREDNISONE. [Concomitant]
     Active Substance: PREDNISONE
  10. HEPARIN [Concomitant]
     Active Substance: HEPARIN SODIUM

REACTIONS (4)
  - Liver function test increased [None]
  - Acute myocardial infarction [None]
  - Renal impairment [None]
  - Dialysis [None]

NARRATIVE: CASE EVENT DATE: 20160125
